FAERS Safety Report 4860003-X (Version None)
Quarter: 2005Q4

REPORT INFORMATION
  Report Type: 
  Country: None (occurrence: None)
  Receive Date: 20051219
  Receipt Date: 20051213
  Transmission Date: 20060501
  Serious: Yes (Hospitalization)
  Sender: FDA-Public Use
  Company Number: JP-MERCK-0512USA02273

PATIENT
  Age: 58 Year
  Sex: Female

DRUGS (2)
  1. COZAAR [Suspect]
     Indication: HYPERTENSION
     Route: 048
  2. CALBLOCK [Suspect]
     Indication: HYPERTENSION
     Route: 048

REACTIONS (1)
  - GENERALISED ERYTHEMA [None]
